FAERS Safety Report 5364309-X (Version None)
Quarter: 2007Q2

REPORT INFORMATION
  Report Type: 
  Country: None (occurrence: None)
  Receive Date: 20070618
  Receipt Date: 20070611
  Transmission Date: 20071010
  Serious: Yes (Hospitalization)
  Sender: FDA-Public Use
  Company Number: 2007SP011918

PATIENT
  Age: 73 Year
  Sex: Female
  Weight: 40 kg

DRUGS (16)
  1. TEMODAL [Suspect]
     Indication: GLIOBLASTOMA MULTIFORME
     Dosage: SEE IMAGE
     Route: 048
     Dates: start: 20061205, end: 20070102
  2. TEMODAL [Suspect]
     Indication: NEOPLASM RECURRENCE
     Dosage: SEE IMAGE
     Route: 048
     Dates: start: 20061205, end: 20070102
  3. TEMODAL [Suspect]
     Indication: GLIOBLASTOMA MULTIFORME
     Dosage: SEE IMAGE
     Route: 048
     Dates: start: 20070104, end: 20070206
  4. TEMODAL [Suspect]
     Indication: NEOPLASM RECURRENCE
     Dosage: SEE IMAGE
     Route: 048
     Dates: start: 20070104, end: 20070206
  5. TEMODAL [Suspect]
     Indication: GLIOBLASTOMA MULTIFORME
     Dosage: SEE IMAGE
     Route: 048
     Dates: start: 20070207, end: 20070305
  6. TEMODAL [Suspect]
     Indication: NEOPLASM RECURRENCE
     Dosage: SEE IMAGE
     Route: 048
     Dates: start: 20070207, end: 20070305
  7. TEMODAL [Suspect]
     Indication: GLIOBLASTOMA MULTIFORME
     Dosage: SEE IMAGE
     Route: 048
     Dates: start: 20070306, end: 20070327
  8. TEMODAL [Suspect]
     Indication: NEOPLASM RECURRENCE
     Dosage: SEE IMAGE
     Route: 048
     Dates: start: 20070306, end: 20070327
  9. BAKTAR [Concomitant]
  10. NASEA OD [Concomitant]
  11. NAUZELIN [Concomitant]
  12. MAGNESIUM OXIDE [Concomitant]
  13. CALBLOCK [Concomitant]
  14. LIPITOR [Concomitant]
  15. ALEVIATIN [Concomitant]
  16. EXCEGRAN [Concomitant]

REACTIONS (2)
  - PLATELET COUNT DECREASED [None]
  - PNEUMONIA [None]
